FAERS Safety Report 15098707 (Version 12)
Quarter: 2018Q4

REPORT INFORMATION
  Report Type: Report from Study
  Country: CA (occurrence: CA)
  Receive Date: 20180702
  Receipt Date: 20181022
  Transmission Date: 20190204
  Serious: Yes (Other)
  Sender: FDA-Public Use
  Company Number: CA-JNJFOC-20180637691

PATIENT
  Age: 16 Year
  Sex: Female
  Weight: 62.6 kg

DRUGS (6)
  1. REMICADE [Suspect]
     Active Substance: INFLIXIMAB
     Indication: COLITIS ULCERATIVE
     Dosage: RECEIVED 10TH INFUSION 400 MG ONCE EVERY 2 WEEKS ON 24-JUL-2018
     Route: 042
     Dates: start: 20180817
  2. REMICADE [Suspect]
     Active Substance: INFLIXIMAB
     Indication: COLITIS ULCERATIVE
     Route: 042
     Dates: start: 20171229
  3. REMICADE [Suspect]
     Active Substance: INFLIXIMAB
     Indication: CROHN^S DISEASE
     Dosage: RECEIVED 10TH INFUSION 400 MG ONCE EVERY 2 WEEKS ON 24-JUL-2018
     Route: 042
     Dates: start: 20180817
  4. REMICADE [Suspect]
     Active Substance: INFLIXIMAB
     Indication: CROHN^S DISEASE
     Route: 042
     Dates: start: 20171229
  5. REMICADE [Suspect]
     Active Substance: INFLIXIMAB
     Indication: COLITIS ULCERATIVE
     Dosage: DOSE ALSO REPORTED AS 570 MG
     Route: 042
     Dates: end: 20181011
  6. REMICADE [Suspect]
     Active Substance: INFLIXIMAB
     Indication: CROHN^S DISEASE
     Dosage: DOSE ALSO REPORTED AS 570 MG
     Route: 042
     Dates: end: 20181011

REACTIONS (7)
  - Inflammatory bowel disease [Not Recovered/Not Resolved]
  - Drug effect decreased [Unknown]
  - Oropharyngeal pain [Unknown]
  - Pyrexia [Recovered/Resolved]
  - Nasal congestion [Unknown]
  - General physical health deterioration [Not Recovered/Not Resolved]
  - Rash pruritic [Unknown]

NARRATIVE: CASE EVENT DATE: 2018
